FAERS Safety Report 8236608-5 (Version None)
Quarter: 2012Q1

REPORT INFORMATION
  Report Type: 
  Country: None (occurrence: None)
  Receive Date: 20120326
  Receipt Date: 20120326
  Transmission Date: 20120608
  Serious: No
  Sender: FDA-Public Use
  Company Number: None

PATIENT
  Sex: Female
  Weight: 95.709 kg

DRUGS (1)
  1. LEVOTHYROXINE SODIUM [Suspect]
     Indication: HYPOTHYROIDISM
     Dosage: 100 MCG 3 TIMES A WEEK 88MCG 4 TIMES A WEEK

REACTIONS (3)
  - THYROID DISORDER [None]
  - UNEVALUABLE EVENT [None]
  - ANXIETY [None]
